FAERS Safety Report 4769888-9 (Version None)
Quarter: 2005Q3

REPORT INFORMATION
  Report Type: 
  Country: None (occurrence: None)
  Receive Date: 20050915
  Receipt Date: 20050831
  Transmission Date: 20060218
  Serious: Yes (Hospitalization)
  Sender: FDA-Public Use
  Company Number: US-AMGEN-KDL146210

PATIENT
  Sex: Female
  Weight: 74.9 kg

DRUGS (7)
  1. PROCRIT [Suspect]
     Indication: RENAL FAILURE CHRONIC
     Dates: start: 20050801
  2. ACTOS [Concomitant]
  3. LANTUS [Concomitant]
  4. AVANDIA [Concomitant]
  5. LIPITOR [Concomitant]
  6. TOPROL-XL [Concomitant]
  7. NIFEREX [Concomitant]

REACTIONS (2)
  - ANAEMIA [None]
  - CONDITION AGGRAVATED [None]
